FAERS Safety Report 7318303-X (Version None)
Quarter: 2011Q1

REPORT INFORMATION
  Report Type: 
  Country: None (occurrence: None)
  Receive Date: 20110228
  Receipt Date: 20110217
  Transmission Date: 20110831
  Serious: No
  Sender: FDA-Public Use
  Company Number: US-BIOGENIDEC-2011BI006464

PATIENT
  Sex: Female

DRUGS (1)
  1. AVONEX [Suspect]
     Indication: MULTIPLE SCLEROSIS
     Route: 030
     Dates: start: 20060921

REACTIONS (4)
  - BURSITIS [None]
  - MUSCLE SPASMS [None]
  - THYROID FUNCTION TEST ABNORMAL [None]
  - HEADACHE [None]
